FAERS Safety Report 14448358 (Version 1)
Quarter: 2018Q1

REPORT INFORMATION
  Report Type: Spontaneous
  Country: US (occurrence: US)
  Receive Date: 20180126
  Receipt Date: 20180126
  Transmission Date: 20180509
  Serious: No
  Sender: FDA-Public Use
  Company Number: US-BEH-2018087251

PATIENT
  Sex: Female

DRUGS (24)
  1. VICTOZA [Concomitant]
     Active Substance: LIRAGLUTIDE
     Route: 065
  2. DICYCLOMINE                        /00068601/ [Concomitant]
     Active Substance: DICYCLOMINE HYDROCHLORIDE
     Dosage: 10 MG, UNK
     Route: 065
  3. TRAZODONE HYDROCHLORIDE. [Concomitant]
     Active Substance: TRAZODONE HYDROCHLORIDE
     Dosage: 300 MG, UNK
     Route: 065
  4. ALPRAZOLAM. [Concomitant]
     Active Substance: ALPRAZOLAM
     Dosage: 0.25 MG, UNK
     Route: 065
  5. LEVEMIR [Concomitant]
     Active Substance: INSULIN DETEMIR
     Dosage: 100 IU, UNK
     Route: 065
  6. PRIVIGEN [Suspect]
     Active Substance: HUMAN IMMUNOGLOBULIN G
     Indication: IMMUNODEFICIENCY
     Dosage: UNK
     Route: 042
  7. OXYCODONE AND ACETAMINOPHEN [Concomitant]
     Active Substance: ACETAMINOPHEN\OXYCODONE HYDROCHLORIDE
     Dosage: 325 MG, UNK
     Route: 065
  8. GABAPENTIN. [Concomitant]
     Active Substance: GABAPENTIN
     Dosage: 300 MG, UNK
     Route: 065
  9. ROPINIROLE HCL [Concomitant]
     Active Substance: ROPINIROLE HYDROCHLORIDE
     Dosage: 4 MG, UNK
     Route: 065
  10. LOSARTAN. [Concomitant]
     Active Substance: LOSARTAN
     Dosage: 50 MG, UNK
     Route: 065
  11. LEVOTHYROXINE. [Concomitant]
     Active Substance: LEVOTHYROXINE
     Dosage: 100 ?G, UNK
     Route: 065
  12. NITROFURANTOIN. [Concomitant]
     Active Substance: NITROFURANTOIN
     Dosage: 100 MG, UNK
     Route: 065
  13. LEVOFLOXACIN. [Concomitant]
     Active Substance: LEVOFLOXACIN
     Route: 065
  14. RIZATRIPTAN. [Concomitant]
     Active Substance: RIZATRIPTAN
     Dosage: 10 MG, UNK
     Route: 065
  15. CANAGLIFLOZIN [Concomitant]
     Active Substance: CANAGLIFLOZIN
     Dosage: 100 MG, UNK
     Route: 065
  16. LIDOCAINE. [Concomitant]
     Active Substance: LIDOCAINE
     Dosage: 5 %, UNK
     Route: 065
  17. BENZONATATE. [Concomitant]
     Active Substance: BENZONATATE
     Route: 065
  18. CARISOPRODOL. [Concomitant]
     Active Substance: CARISOPRODOL
     Dosage: 350 MG, UNK
     Route: 065
  19. ROPINIROLE HCL [Concomitant]
     Active Substance: ROPINIROLE HYDROCHLORIDE
     Dosage: 1 MG, UNK
     Route: 065
  20. PRIVIGEN [Suspect]
     Active Substance: HUMAN IMMUNOGLOBULIN G
     Indication: HUMORAL IMMUNE DEFECT
     Dosage: 200 G, OVER 4 DAYS QMT
     Route: 042
  21. HYDROCODONE [Concomitant]
     Active Substance: HYDROCODONE
     Dosage: 325 MG, UNK
     Route: 065
  22. AMLODIPINE [Concomitant]
     Active Substance: AMLODIPINE BESYLATE
     Dosage: 10 MG, UNK
     Route: 065
  23. FLUOXETINE [Concomitant]
     Active Substance: FLUOXETINE HYDROCHLORIDE
     Dosage: 40 MG, UNK
     Route: 065
  24. PANTOPRAZOLE [Concomitant]
     Active Substance: PANTOPRAZOLE
     Dosage: 40 MG, UNK
     Route: 065

REACTIONS (1)
  - Headache [Recovered/Resolved]
